FAERS Safety Report 10653976 (Version 4)
Quarter: 2015Q2

REPORT INFORMATION
  Report Type: Report from Study
  Country: JP (occurrence: JP)
  Receive Date: 20141216
  Receipt Date: 20150527
  Transmission Date: 20150821
  Serious: Yes (Hospitalization)
  Sender: FDA-Public Use
  Company Number: JP-JNJFOC-20140406494

PATIENT
  Age: 70 Year
  Sex: Male
  Weight: 57 kg

DRUGS (18)
  1. BLINDED RIVAROXABAN [Suspect]
     Active Substance: RIVAROXABAN
     Indication: CARDIOVASCULAR EVENT PROPHYLAXIS
     Route: 048
     Dates: start: 20141107
  2. CRAVIT [Concomitant]
     Active Substance: LEVOFLOXACIN
     Route: 047
  3. ACETYLSALICYLIC  ACID [Suspect]
     Active Substance: ASPIRIN
     Indication: CARDIOVASCULAR EVENT PROPHYLAXIS
     Route: 048
     Dates: start: 20131113, end: 20140312
  4. LUMIGAN [Concomitant]
     Active Substance: BIMATOPROST
     Indication: GLAUCOMA
     Route: 047
     Dates: start: 2010
  5. COSOPT [Concomitant]
     Active Substance: DORZOLAMIDE HYDROCHLORIDE\TIMOLOL MALEATE
     Indication: GLAUCOMA
     Route: 047
     Dates: start: 2011
  6. DIAMOX SEQUELS [Concomitant]
     Active Substance: ACETAZOLAMIDE
     Route: 048
  7. RINDERON V [Concomitant]
     Active Substance: BETAMETHASONE VALERATE
     Route: 047
  8. BLINDED RIVAROXABAN [Suspect]
     Active Substance: RIVAROXABAN
     Indication: CARDIOVASCULAR EVENT PROPHYLAXIS
     Route: 048
     Dates: start: 20140329, end: 20141104
  9. DICLOD [Concomitant]
     Active Substance: DICLOFENAC SODIUM
     Route: 047
  10. ACETYLSALICYLIC  ACID [Suspect]
     Active Substance: ASPIRIN
     Indication: CARDIOVASCULAR EVENT PROPHYLAXIS
     Route: 048
     Dates: start: 20141107
  11. DORZOLAMIDE HYDROCHLORIDE-TIMOLOL MALEATE [Concomitant]
     Active Substance: DORZOLAMIDE HYDROCHLORIDE\TIMOLOL MALEATE
     Indication: GLAUCOMA
     Dosage: 2 OR 3 DROPS
     Route: 065
     Dates: start: 2011
  12. ALPHAGAN P [Concomitant]
     Active Substance: BRIMONIDINE TARTRATE
     Indication: GLAUCOMA
     Dosage: 2-3 DROPS
     Route: 047
     Dates: start: 2013
  13. CRESTOR [Concomitant]
     Active Substance: ROSUVASTATIN CALCIUM
     Indication: DYSLIPIDAEMIA
     Route: 048
     Dates: start: 20070711
  14. BLINDED RIVAROXABAN [Suspect]
     Active Substance: RIVAROXABAN
     Indication: CARDIOVASCULAR EVENT PROPHYLAXIS
     Route: 048
     Dates: start: 20131113
  15. ACETYLSALICYLIC  ACID [Suspect]
     Active Substance: ASPIRIN
     Indication: CARDIOVASCULAR EVENT PROPHYLAXIS
     Route: 048
     Dates: start: 20140329, end: 20141031
  16. NEXIUM [Concomitant]
     Active Substance: ESOMEPRAZOLE MAGNESIUM
     Indication: PROPHYLAXIS AGAINST GASTROINTESTINAL ULCER
     Route: 048
     Dates: start: 20130911
  17. BIMATOPROST. [Concomitant]
     Active Substance: BIMATOPROST
     Indication: GLAUCOMA
     Dosage: 2 OR 3 DROPS
     Route: 047
  18. HERBESSER [Concomitant]
     Active Substance: DILTIAZEM HYDROCHLORIDE
     Indication: ANGINA PECTORIS
     Route: 048
     Dates: start: 20050210

REACTIONS (5)
  - Rotator cuff repair [Recovered/Resolved]
  - Glaucoma surgery [Recovered/Resolved]
  - Haemarthrosis [Recovered/Resolved]
  - Cataract operation [Recovered/Resolved]
  - Postoperative care [Recovered/Resolved]

NARRATIVE: CASE EVENT DATE: 20140317
